FAERS Safety Report 6174922-8 (Version None)
Quarter: 2009Q2

REPORT INFORMATION
  Report Type: 
  Country: None (occurrence: None)
  Receive Date: 20090430
  Receipt Date: 20081010
  Transmission Date: 20091009
  Serious: No
  Sender: FDA-Public Use
  Company Number: US-ASTRAZENECA-2008UW22191

PATIENT
  Age: 62 Year
  Sex: Male
  Weight: 174 kg

DRUGS (1)
  1. NEXIUM [Suspect]
     Indication: GASTROOESOPHAGEAL REFLUX DISEASE
     Route: 048

REACTIONS (4)
  - DIARRHOEA [None]
  - HEADACHE [None]
  - LETHARGY [None]
  - SOMNOLENCE [None]
